FAERS Safety Report 5375768-0 (Version None)
Quarter: 2007Q2

REPORT INFORMATION
  Report Type: 
  Country: None (occurrence: None)
  Receive Date: 20070628
  Receipt Date: 20070618
  Transmission Date: 20071010
  Serious: Yes (Hospitalization)
  Sender: FDA-Public Use
  Company Number: 234969K07USA

PATIENT
  Age: 59 Year
  Sex: Male

DRUGS (3)
  1. REBIF [Suspect]
     Indication: MULTIPLE SCLEROSIS
     Dosage: 44 MCG, 3 IN 1 WEEKS, SUBCUTANEOUS
     Route: 058
     Dates: start: 20030824
  2. LANTUS [Concomitant]
  3. HUMALOG INSULIN (INSULIN LISPRO) [Concomitant]

REACTIONS (6)
  - BLADDER DISORDER [None]
  - CONDITION AGGRAVATED [None]
  - MULTIPLE SCLEROSIS [None]
  - OPTIC NEURITIS [None]
  - SEPSIS [None]
  - URINARY TRACT INFECTION [None]
